FAERS Safety Report 9718356 (Version 1)
Quarter: 2013Q4

REPORT INFORMATION
  Report Type: Spontaneous
  Country: US (occurrence: None)
  Receive Date: 20131125
  Receipt Date: 20131125
  Transmission Date: 20140711
  Serious: Yes (Other)
  Sender: FDA-Public Use
  Company Number: 2013P1021121

PATIENT
  Age: 67 Year
  Sex: Female

DRUGS (5)
  1. CLINDAMYCIN [Suspect]
     Indication: CELLULITIS
     Dosage: IV
     Route: 042
  2. VANCOMYCIN [Suspect]
     Indication: CELLULITIS
     Dosage: IV
     Route: 042
  3. CEFTRIAXONE [Suspect]
     Indication: CELLULITIS
  4. LINEZOLID [Suspect]
     Indication: CELLULITIS
  5. CEFEPIME [Suspect]
     Indication: CELLULITIS

REACTIONS (1)
  - Acute generalised exanthematous pustulosis [None]
